FAERS Safety Report 10514117 (Version 3)
Quarter: 2015Q1

REPORT INFORMATION
  Report Type: Report from Study
  Country: US (occurrence: US)
  Receive Date: 20141013
  Receipt Date: 20150108
  Transmission Date: 20150720
  Serious: Yes (Other)
  Sender: FDA-Public Use
  Company Number: US-ABBVIE-14K-163-1292907-00

PATIENT
  Age: 25 Year
  Sex: Female
  Weight: 69.92 kg

DRUGS (3)
  1. BUSPIRONE [Concomitant]
     Active Substance: BUSPIRONE HYDROCHLORIDE
     Indication: PRODUCT USED FOR UNKNOWN INDICATION
  2. TRILEPTAL [Concomitant]
     Active Substance: OXCARBAZEPINE
     Indication: PRODUCT USED FOR UNKNOWN INDICATION
  3. HUMIRA [Suspect]
     Active Substance: ADALIMUMAB
     Indication: PSORIASIS
     Route: 065
     Dates: start: 201407

REACTIONS (7)
  - Skin mass [Unknown]
  - Basal cell carcinoma [Recovered/Resolved]
  - Melanocytic hyperplasia [Recovered/Resolved]
  - Drug effect incomplete [Not Recovered/Not Resolved]
  - Skin cancer [Recovered/Resolved]
  - Injection site bruising [Not Recovered/Not Resolved]
  - Skin discolouration [Unknown]

NARRATIVE: CASE EVENT DATE: 2014
